FAERS Safety Report 5019387-4 (Version None)
Quarter: 2006Q2

REPORT INFORMATION
  Report Type: 
  Country: None (occurrence: None)
  Receive Date: 20060531
  Receipt Date: 20060523
  Transmission Date: 20061013
  Serious: Yes (Life-Threatening, Hospitalization, Disabling)
  Sender: FDA-Public Use
  Company Number: 2005154083

PATIENT
  Age: 25 Year
  Sex: Male

DRUGS (5)
  1. GENOTROPIN [Suspect]
     Indication: HYPOPITUITARISM
     Dosage: 0.4 MG (0.4 MG DAILY)
     Dates: start: 19990701, end: 20050401
  2. LEVOTHYROXINE SODIUM [Concomitant]
  3. MINURIN (DESMOPRESSIN) [Concomitant]
  4. TESTOVIRON(TESTOSTERONE ENANTATE) [Concomitant]
  5. HIDROALTESONA (HYDROCORTISONE) [Concomitant]

REACTIONS (2)
  - BLINDNESS [None]
  - NEOPLASM PROGRESSION [None]
